FAERS Safety Report 12779227 (Version 1)
Quarter: 2016Q3

REPORT INFORMATION
  Report Type: Spontaneous
  Country: US (occurrence: US)
  Receive Date: 20160922
  Receipt Date: 20160922
  Transmission Date: 20161109
  Serious: Yes (Death, Life-Threatening)
  Sender: FDA-Public Use
  Company Number: None

PATIENT
  Age: 65 Year
  Sex: Female
  Weight: 55.5 kg

DRUGS (14)
  1. AMBIEN [Concomitant]
     Active Substance: ZOLPIDEM TARTRATE
  2. DILAUDID [Concomitant]
     Active Substance: HYDROMORPHONE HYDROCHLORIDE
  3. ACETAMINOPHEN. [Concomitant]
     Active Substance: ACETAMINOPHEN
  4. HYDROMORPHONE [Concomitant]
     Active Substance: HYDROMORPHONE
  5. LEVOTHYROXINE (LEVOTHROID) [Concomitant]
  6. PREDNISONE. [Concomitant]
     Active Substance: PREDNISONE
  7. ROSE GERANIUM IN SESAME OIL SPRAY [Concomitant]
  8. FLUID [Concomitant]
     Active Substance: UNSPECIFIED INGREDIENT
  9. ONDANSETRON [Concomitant]
     Active Substance: ONDANSETRON
  10. TYLENOL [Concomitant]
     Active Substance: ACETAMINOPHEN
  11. OXYCODONE [Concomitant]
     Active Substance: OXYCODONE
  12. NAB-PACLITAXEL 100MG VIAL [Suspect]
     Active Substance: PACLITAXEL
     Indication: METASTATIC MALIGNANT MELANOMA
     Route: 042
     Dates: start: 20160919
  13. BEVACIZUMAB 25MG/ML, 4ML VIAL [Suspect]
     Active Substance: BEVACIZUMAB
     Indication: METASTATIC MALIGNANT MELANOMA
     Route: 042
     Dates: start: 20160919
  14. ZOFRAN (AS HYDROCHLORIDE) [Concomitant]

REACTIONS (10)
  - Condition aggravated [None]
  - Discomfort [None]
  - Nausea [None]
  - Abdominal pain [None]
  - Vomiting [None]
  - Pyrexia [None]
  - Hypophagia [None]
  - Chills [None]
  - Abdominal discomfort [None]
  - Diarrhoea [None]

NARRATIVE: CASE EVENT DATE: 20160920
